FAERS Safety Report 24076291 (Version 1)
Quarter: 2024Q3

REPORT INFORMATION
  Report Type: Spontaneous
  Country: US (occurrence: US)
  Receive Date: 20240711
  Receipt Date: 20240711
  Transmission Date: 20241016
  Serious: Yes (Other)
  Sender: Haleon PLC
  Company Number: US-HALEON-2185733

PATIENT

DRUGS (1)
  1. ADVIL COLD AND SINUS [Suspect]
     Active Substance: IBUPROFEN\PSEUDOEPHEDRINE HYDROCHLORIDE
     Indication: Illness

REACTIONS (4)
  - Haemorrhage [Unknown]
  - Skin laceration [Unknown]
  - Product complaint [Unknown]
  - Product package associated injury [Unknown]
